FAERS Safety Report 5404580-9 (Version None)
Quarter: 2007Q3

REPORT INFORMATION
  Report Type: 
  Country: None (occurrence: None)
  Receive Date: 20070713
  Receipt Date: 20061129
  Transmission Date: 20080115
  Serious: Yes (Other)
  Sender: FDA-Public Use
  Company Number: US-JNJFOC-20041000052

PATIENT
  Age: 18 Year
  Sex: Female
  Weight: 53.0709 kg

DRUGS (4)
  1. ORTHO EVRA [Suspect]
     Indication: CONTRACEPTION
     Dosage: 1 DOSE(S), 3 IN 4 WEEK, TRANSDERMAL
     Route: 062
     Dates: start: 20021031, end: 20040215
  2. ORTHO EVRA [Suspect]
     Indication: MENSTRUAL DISORDER
     Dosage: 1 DOSE(S), 3 IN 4 WEEK, TRANSDERMAL
     Route: 062
     Dates: start: 20021031, end: 20040215
  3. ORTHO EVRA [Suspect]
     Indication: MIGRAINE PROPHYLAXIS
     Dosage: 1 DOSE(S), 3 IN 4 WEEK, TRANSDERMAL
     Route: 062
     Dates: start: 20021031, end: 20040215
  4. PAXIL [Concomitant]

REACTIONS (1)
  - CEREBROVASCULAR ACCIDENT [None]
